FAERS Safety Report 20898259 (Version 1)
Quarter: 2022Q2

REPORT INFORMATION
  Report Type: Spontaneous
  Country: FR (occurrence: FR)
  Receive Date: 20220531
  Receipt Date: 20220531
  Transmission Date: 20220721
  Serious: Yes (Other)
  Sender: FDA-Public Use
  Company Number: None

PATIENT
  Age: 18 Year
  Sex: Female
  Weight: 80 kg

DRUGS (8)
  1. KEPPRA [Suspect]
     Active Substance: LEVETIRACETAM
     Indication: Prophylaxis
     Dosage: 1000MG DAILY
     Route: 042
     Dates: start: 20220221, end: 20220222
  2. DESMOPRESSIN ACETATE [Suspect]
     Active Substance: DESMOPRESSIN ACETATE
     Indication: Diabetes insipidus
     Dosage: 4MICROGRAM DAILY
     Route: 042
     Dates: start: 20220221, end: 20220224
  3. HYDROCORTISONE HEMISUCCINATE [Suspect]
     Active Substance: HYDROCORTISONE HEMISUCCINATE
     Indication: Cardiogenic shock
     Dosage: 200MG DAILY
     Dates: start: 20220221, end: 20220224
  4. ISUPREL [Suspect]
     Active Substance: ISOPROTERENOL HYDROCHLORIDE
     Indication: Positive cardiac inotropic effect
     Dosage: 0.4MG DAILY
     Route: 042
     Dates: start: 20220223, end: 20220226
  5. DOBUTAMINE HYDROCHLORIDE [Suspect]
     Active Substance: DOBUTAMINE HYDROCHLORIDE
     Indication: Cardiogenic shock
     Dosage: 250MG DAILY
     Route: 042
     Dates: start: 20220221, end: 20220223
  6. ROCURONIUM BROMIDE [Suspect]
     Active Substance: ROCURONIUM BROMIDE
     Indication: Cardiogenic shock
     Dosage: 50MG DAILY
     Route: 042
     Dates: start: 20220221, end: 20220222
  7. IOMERON [Suspect]
     Active Substance: IOMEPROL
     Indication: Computerised tomogram
     Dosage: 1 DOSAGE FORM DAILY
     Route: 042
     Dates: start: 20220220, end: 20220220
  8. AUGMENTIN [Suspect]
     Active Substance: AMOXICILLIN\CLAVULANATE POTASSIUM
     Indication: Skull fracture
     Dosage: 12 G DAILY
     Route: 042
     Dates: start: 20220220, end: 20220223

REACTIONS (2)
  - Fixed eruption [Recovering/Resolving]
  - Dermatitis bullous [Recovering/Resolving]

NARRATIVE: CASE EVENT DATE: 20220224
